FAERS Safety Report 8714431 (Version 2)
Quarter: 2016Q1

REPORT INFORMATION
  Report Type: Spontaneous
  Country: US (occurrence: US)
  Receive Date: 20120809
  Receipt Date: 20160302
  Transmission Date: 20160526
  Serious: Yes (Other)
  Sender: FDA-Public Use
  Company Number: US-PFIZER INC-2012192315

PATIENT
  Age: 57 Year
  Sex: Female
  Weight: 86.17 kg

DRUGS (5)
  1. LIPITOR [Suspect]
     Active Substance: ATORVASTATIN CALCIUM
     Indication: BLOOD CHOLESTEROL INCREASED
     Dosage: 40 MG, 1X/DAY
  2. DIOVAN [Concomitant]
     Active Substance: VALSARTAN
     Indication: HYPERTENSION
     Dosage: 160 MG, 1X/DAY
  3. PRISTIQ EXTENDED RELEASE [Suspect]
     Active Substance: DESVENLAFAXINE SUCCINATE
     Dosage: 50 MG, 1X/DAY
     Route: 048
     Dates: start: 20120806, end: 20160225
  4. PRISTIQ EXTENDED RELEASE [Suspect]
     Active Substance: DESVENLAFAXINE SUCCINATE
     Indication: DEPRESSION
     Dosage: 50 MG, 1X/DAY
     Route: 048
     Dates: start: 20120127, end: 2012
  5. PRISTIQ EXTENDED RELEASE [Suspect]
     Active Substance: DESVENLAFAXINE SUCCINATE
     Dosage: 50 MG, 1X/DAY
     Route: 048
     Dates: start: 20120226, end: 2012

REACTIONS (28)
  - Depression [Not Recovered/Not Resolved]
  - Withdrawal syndrome [Unknown]
  - Influenza like illness [Not Recovered/Not Resolved]
  - Irritability [Not Recovered/Not Resolved]
  - Somnolence [Unknown]
  - Feeling abnormal [Not Recovered/Not Resolved]
  - Blood cholesterol increased [Not Recovered/Not Resolved]
  - Agitation [Not Recovered/Not Resolved]
  - Asthenia [Not Recovered/Not Resolved]
  - Heart rate increased [Unknown]
  - High density lipoprotein decreased [Not Recovered/Not Resolved]
  - Cold sweat [Unknown]
  - Clumsiness [Unknown]
  - Nasopharyngitis [Unknown]
  - Poor quality drug administered [Unknown]
  - Hostility [Not Recovered/Not Resolved]
  - Insomnia [Not Recovered/Not Resolved]
  - Drug ineffective [Not Recovered/Not Resolved]
  - Abnormal behaviour [Unknown]
  - Weight increased [Unknown]
  - Dizziness [Not Recovered/Not Resolved]
  - Anxiety [Not Recovered/Not Resolved]
  - Malaise [Not Recovered/Not Resolved]
  - Blood pressure increased [Not Recovered/Not Resolved]
  - Nervousness [Unknown]
  - Disorientation [Not Recovered/Not Resolved]
  - Suicidal ideation [Unknown]
  - Anger [Not Recovered/Not Resolved]

NARRATIVE: CASE EVENT DATE: 2012
